FAERS Safety Report 11820332 (Version 2)
Quarter: 2015Q4

REPORT INFORMATION
  Report Type: Spontaneous
  Country: GB (occurrence: GB)
  Receive Date: 20151210
  Receipt Date: 20151210
  Transmission Date: 20160305
  Serious: Yes (Other)
  Sender: FDA-Public Use
  Company Number: GB-AUROBINDO-AUR-APL-2015-11148

PATIENT
  Age: 24 Year
  Sex: Male
  Weight: 70 kg

DRUGS (3)
  1. OMEPRAZOLE. [Concomitant]
     Active Substance: OMEPRAZOLE
     Indication: PRODUCT USED FOR UNKNOWN INDICATION
     Route: 065
  2. VENLAFAXINE [Suspect]
     Active Substance: VENLAFAXINE HYDROCHLORIDE
     Indication: MAJOR DEPRESSION
     Dosage: 275 MG, UNK
     Route: 048
     Dates: start: 20141001, end: 20151107
  3. HYOSCINE BUTYLBROMIDE [Concomitant]
     Active Substance: BUTYLSCOPOLAMINE
     Indication: PRODUCT USED FOR UNKNOWN INDICATION
     Route: 065

REACTIONS (8)
  - Headache [Unknown]
  - Sensory disturbance [Unknown]
  - Chills [Unknown]
  - Nausea [Unknown]
  - Paraesthesia [Unknown]
  - Withdrawal syndrome [Recovered/Resolved with Sequelae]
  - Influenza like illness [Unknown]
  - Tinnitus [Unknown]

NARRATIVE: CASE EVENT DATE: 20151107
